FAERS Safety Report 5252072-2 (Version None)
Quarter: 2007Q1

REPORT INFORMATION
  Report Type: 
  Country: None (occurrence: None)
  Receive Date: 20070226
  Receipt Date: 20070216
  Transmission Date: 20070707
  Serious: Yes (Other)
  Sender: FDA-Public Use
  Company Number: 2007SP001149

PATIENT
  Age: 31 Year
  Sex: Female

DRUGS (1)
  1. INTRON A [Suspect]
     Indication: DRUG USE FOR UNKNOWN INDICATION
     Dosage: UNK

REACTIONS (5)
  - BRAIN NEOPLASM [None]
  - FATIGUE [None]
  - HEPATIC NEOPLASM [None]
  - LETHARGY [None]
  - MALIGNANT MELANOMA [None]
